FAERS Safety Report 7065039-9 (Version None)
Quarter: 2010Q4

REPORT INFORMATION
  Report Type: 
  Country: None (occurrence: None)
  Receive Date: 20101027
  Receipt Date: 20101019
  Transmission Date: 20110411
  Serious: Yes (Hospitalization)
  Sender: FDA-Public Use
  Company Number: PHHO2010US13827

PATIENT
  Sex: Male
  Weight: 82.4 kg

DRUGS (5)
  1. AFINITOR [Suspect]
     Indication: OESOPHAGEAL CARCINOMA
     Dosage: 5 MG TWICE PER WEEK
     Route: 048
     Dates: start: 20100907, end: 20100908
  2. SIMVASTATIN [Concomitant]
  3. OMEPRAZOLE [Concomitant]
  4. LISINOPRIL [Concomitant]
  5. ACETAMINOPHEN [Concomitant]

REACTIONS (14)
  - ASPIRATION PLEURAL CAVITY [None]
  - ATRIAL FIBRILLATION [None]
  - CATHETER SITE DISCHARGE [None]
  - DRUG INEFFECTIVE [None]
  - DYSPHONIA [None]
  - DYSPNOEA [None]
  - LYMPHADENOPATHY MEDIASTINAL [None]
  - MALIGNANT NEOPLASM PROGRESSION [None]
  - MALIGNANT PLEURAL EFFUSION [None]
  - METASTASES TO LIVER [None]
  - MUSCULOSKELETAL DISCOMFORT [None]
  - NON-CARDIAC CHEST PAIN [None]
  - PULMONARY OEDEMA [None]
  - RASH MACULAR [None]
